FAERS Safety Report 18141192 (Version 2)
Quarter: 2021Q1

REPORT INFORMATION
  Report Type: Spontaneous
  Country: US (occurrence: US)
  Receive Date: 20200812
  Receipt Date: 20210106
  Transmission Date: 20210419
  Serious: Yes (Other)
  Sender: FDA-Public Use
  Company Number: US-GILEAD-2020-0489338

PATIENT
  Age: 63 Year
  Sex: Male
  Weight: 76.19 kg

DRUGS (71)
  1. VIREAD [Suspect]
     Active Substance: TENOFOVIR DISOPROXIL FUMARATE
     Indication: HIV INFECTION
     Dosage: UNK
     Route: 048
     Dates: start: 2008, end: 20160613
  2. ACTOS [Concomitant]
     Active Substance: PIOGLITAZONE HYDROCHLORIDE
  3. ALTEPLASE. [Concomitant]
     Active Substance: ALTEPLASE
  4. CEFEPIME [Concomitant]
     Active Substance: CEFEPIME HYDROCHLORIDE
  5. CHANTIX [Concomitant]
     Active Substance: VARENICLINE TARTRATE
  6. FEXOFENADINE HCL [Concomitant]
     Active Substance: FEXOFENADINE HYDROCHLORIDE
  7. METOPROLOL. [Concomitant]
     Active Substance: METOPROLOL
  8. NORCO [Concomitant]
     Active Substance: ACETAMINOPHEN\HYDROCODONE BITARTRATE
  9. NORVASC [Concomitant]
     Active Substance: AMLODIPINE BESYLATE
  10. TRAMADOL. [Concomitant]
     Active Substance: TRAMADOL
  11. VIAGRA [Concomitant]
     Active Substance: SILDENAFIL CITRATE
  12. CRIXIVAN [Concomitant]
     Active Substance: INDINAVIR SULFATE
  13. EDURANT [Concomitant]
     Active Substance: RILPIVIRINE HYDROCHLORIDE
  14. ACETAMINOPHEN. [Concomitant]
     Active Substance: ACETAMINOPHEN
  15. ALBUTEROL HFA [Concomitant]
     Active Substance: ALBUTEROL SULFATE
  16. ASPRIN [Concomitant]
     Active Substance: ASPIRIN
  17. AUGMENTINE [AMOXICILLIN;CLAVULANIC ACID] [Concomitant]
     Active Substance: AMOXICILLIN\CLAVULANIC ACID
  18. CIPRO [Concomitant]
     Active Substance: CIPROFLOXACIN HYDROCHLORIDE
  19. DOCUSATE;SENNA [Concomitant]
     Active Substance: DOCUSATE\SENNOSIDES
  20. DOXYCYCLINE. [Concomitant]
     Active Substance: DOXYCYCLINE
  21. LISINOPRIL. [Concomitant]
     Active Substance: LISINOPRIL
  22. ZESTORETIC [Concomitant]
     Active Substance: HYDROCHLOROTHIAZIDE\LISINOPRIL
  23. VIRAMUNE [Concomitant]
     Active Substance: NEVIRAPINE
  24. DAPSONE. [Concomitant]
     Active Substance: DAPSONE
  25. DULCOLAX STOOL SOFTENER [Concomitant]
     Active Substance: DOCUSATE SODIUM
  26. ISENTRESS [Concomitant]
     Active Substance: RALTEGRAVIR POTASSIUM
  27. JANUVIA [Concomitant]
     Active Substance: SITAGLIPTIN PHOSPHATE
  28. LEVITRA [Concomitant]
     Active Substance: VARDENAFIL HYDROCHLORIDE
  29. LORATADINE. [Concomitant]
     Active Substance: LORATADINE
  30. ONDANSETRON [Concomitant]
     Active Substance: ONDANSETRON
  31. TIZANIDINE. [Concomitant]
     Active Substance: TIZANIDINE
  32. VANCOMYCIN [Concomitant]
     Active Substance: VANCOMYCIN
  33. EMTRIVA [Concomitant]
     Active Substance: EMTRICITABINE
  34. TIVICAY [Concomitant]
     Active Substance: DOLUTEGRAVIR SODIUM
  35. DOLUTEGRAVIR [Concomitant]
     Active Substance: DOLUTEGRAVIR
  36. LANTUS [Concomitant]
     Active Substance: INSULIN GLARGINE
  37. MIRALAX [Concomitant]
     Active Substance: POLYETHYLENE GLYCOL 3350
  38. NOVOLOG [Concomitant]
     Active Substance: INSULIN ASPART
  39. PROAIR HFA [Concomitant]
     Active Substance: ALBUTEROL SULFATE
  40. VITAMIN D3 [Concomitant]
     Active Substance: CHOLECALCIFEROL
  41. COMPLERA [Suspect]
     Active Substance: EMTRICITABINE\RILPIVIRINE HYDROCHLORIDE\TENOFOVIR DISOPROXIL FUMARATE
     Indication: HIV INFECTION
     Dosage: UNK
     Route: 048
     Dates: start: 2008
  42. FUROSEMIDE. [Concomitant]
     Active Substance: FUROSEMIDE
  43. EPIVIR [Concomitant]
     Active Substance: LAMIVUDINE
  44. EPZICOM [Concomitant]
     Active Substance: ABACAVIR SULFATE\LAMIVUDINE
  45. SUSTIVA [Concomitant]
     Active Substance: EFAVIRENZ
  46. AMLODIPINE [Concomitant]
     Active Substance: AMLODIPINE BESYLATE
  47. GABAPENTIN. [Concomitant]
     Active Substance: GABAPENTIN
  48. NITROGLYCERIN. [Concomitant]
     Active Substance: NITROGLYCERIN
  49. TESSALON [Concomitant]
     Active Substance: BENZONATATE
  50. VALTREX [Concomitant]
     Active Substance: VALACYCLOVIR HYDROCHLORIDE
  51. VENTOLIN HFA [Concomitant]
     Active Substance: ALBUTEROL SULFATE
  52. ATRIPLA [Suspect]
     Active Substance: EFAVIRENZ\EMTRICITABINE\TENOFOVIR DISOPROXIL FUMARATE
     Indication: HIV INFECTION
     Dosage: UNK
     Route: 048
     Dates: start: 2008
  53. GLIPIZIDE. [Concomitant]
     Active Substance: GLIPIZIDE
  54. ISOSORBIDE MONONITRATE. [Concomitant]
     Active Substance: ISOSORBIDE MONONITRATE
  55. LEVEMIR [Concomitant]
     Active Substance: INSULIN DETEMIR
  56. TRUVADA [Suspect]
     Active Substance: EMTRICITABINE\TENOFOVIR DISOPROXIL FUMARATE
     Indication: HIV INFECTION
     Dosage: UNK
     Route: 048
     Dates: start: 20080314, end: 20080509
  57. DESCOVY [Concomitant]
     Active Substance: EMTRICITABINE\TENOFOVIR ALAFENAMIDE FUMARATE
  58. KALETRA [Concomitant]
     Active Substance: LOPINAVIR\RITONAVIR
  59. ACETAMINOPHEN;HYDROCODONE [Concomitant]
     Active Substance: ACETAMINOPHEN\HYDROCODONE
  60. LAMIVUDINE. [Concomitant]
     Active Substance: LAMIVUDINE
  61. PROMETHAZINE [Concomitant]
     Active Substance: PROMETHAZINE HYDROCHLORIDE
  62. TERBINAFINE. [Concomitant]
     Active Substance: TERBINAFINE
  63. ATORVASTATIN [Concomitant]
     Active Substance: ATORVASTATIN
  64. CLINDAMYCIN. [Concomitant]
     Active Substance: CLINDAMYCIN
  65. CLOPIDOGREL [Concomitant]
     Active Substance: CLOPIDOGREL BISULFATE
  66. DIFLUCAN [Concomitant]
     Active Substance: FLUCONAZOLE
  67. HARVONI [Concomitant]
     Active Substance: LEDIPASVIR\SOFOSBUVIR
  68. HYDROCODONE BITARTRATE AND ACETAMINOPHEN [Concomitant]
     Active Substance: ACETAMINOPHEN\HYDROCODONE BITARTRATE
  69. ITRACONAZOLE. [Concomitant]
     Active Substance: ITRACONAZOLE
  70. RILPIVIRINE [Concomitant]
     Active Substance: RILPIVIRINE
  71. VARENICLINE TARTRATE [Concomitant]
     Active Substance: VARENICLINE TARTRATE

REACTIONS (7)
  - Chronic kidney disease [Not Recovered/Not Resolved]
  - Depression [Not Recovered/Not Resolved]
  - Emotional distress [Not Recovered/Not Resolved]
  - Mobility decreased [Not Recovered/Not Resolved]
  - Pain [Not Recovered/Not Resolved]
  - Anhedonia [Not Recovered/Not Resolved]
  - Anxiety [Not Recovered/Not Resolved]

NARRATIVE: CASE EVENT DATE: 20150716
